FAERS Safety Report 10053153 (Version 2)
Quarter: 2014Q2

REPORT INFORMATION
  Report Type: Spontaneous
  Country: US (occurrence: US)
  Receive Date: 20140402
  Receipt Date: 20140527
  Transmission Date: 20141212
  Serious: Yes (Hospitalization)
  Sender: FDA-Public Use
  Company Number: US-BAYER-2014-046376

PATIENT
  Age: 55 Year
  Sex: Male
  Weight: 84.35 kg

DRUGS (3)
  1. ALEVE TABLET [Suspect]
     Indication: TOOTHACHE
     Dosage: 1 DF, ONCE
     Route: 048
     Dates: start: 201310, end: 201310
  2. AMLODIPINE [Concomitant]
  3. BENICAR [Concomitant]

REACTIONS (2)
  - Convulsion [Recovered/Resolved]
  - Feeling abnormal [Recovered/Resolved]
